FAERS Safety Report 5994025-2 (Version None)
Quarter: 2008Q4

REPORT INFORMATION
  Report Type: 
  Country: None (occurrence: None)
  Receive Date: 20081212
  Receipt Date: 20080904
  Transmission Date: 20090506
  Serious: No
  Sender: FDA-Public Use
  Company Number: US-ABBOTT-08P-163-0472220-00

PATIENT
  Sex: Female
  Weight: 53.118 kg

DRUGS (6)
  1. HUMIRA [Suspect]
     Indication: CROHN'S DISEASE
     Dosage: LOADING DOSE
     Dates: start: 20080530, end: 20080530
  2. HUMIRA [Suspect]
     Dates: start: 20080809
  3. MERCAPTOPURINE [Suspect]
     Indication: CROHN'S DISEASE
     Dosage: UNK 1/2 DOSE
     Route: 048
     Dates: start: 20071101, end: 20080501
  4. MERCAPTOPURINE [Suspect]
     Dates: start: 20080813
  5. BUDESONIDE [Concomitant]
     Indication: CROHN'S DISEASE
     Route: 048
  6. METRONIDAZOLE [Concomitant]
     Indication: ANTIFUNGAL PROPHYLAXIS
     Route: 048

REACTIONS (4)
  - ASTHENIA [None]
  - HYPERHIDROSIS [None]
  - NAUSEA [None]
  - TREMOR [None]
